FAERS Safety Report 4812732-1 (Version None)
Quarter: 2005Q4

REPORT INFORMATION
  Report Type: 
  Country: None (occurrence: None)
  Receive Date: 20051028
  Receipt Date: 20041111
  Transmission Date: 20060501
  Serious: No
  Sender: FDA-Public Use
  Company Number: US-GLAXOSMITHKLINE-A0533595A

PATIENT
  Age: 11 Year
  Sex: Male
  Weight: 60.9 kg

DRUGS (2)
  1. ADVAIR DISKUS 100/50 [Suspect]
     Indication: ASTHMA
     Route: 055
     Dates: start: 20030101, end: 20041101
  2. ALBUTEROL [Concomitant]

REACTIONS (3)
  - HYPERTENSION [None]
  - IRRITABILITY [None]
  - MIGRAINE [None]
